FAERS Safety Report 24981561 (Version 3)
Quarter: 2025Q1

REPORT INFORMATION
  Report Type: Spontaneous
  Country: US (occurrence: US)
  Receive Date: 20250218
  Receipt Date: 20250331
  Transmission Date: 20250408
  Serious: No
  Sender: APELLIS PHARMACEUTICALS
  Company Number: US-APELLIS-2025-APL-0000282

PATIENT

DRUGS (1)
  1. SYFOVRE [Suspect]
     Active Substance: PEGCETACOPLAN
     Indication: Dry age-related macular degeneration

REACTIONS (4)
  - Eye inflammation [Recovered/Resolved]
  - Choroidal neovascularisation [Unknown]
  - Bronchitis [Unknown]
  - Eye infection [Unknown]

NARRATIVE: CASE EVENT DATE: 20250206
